FAERS Safety Report 8192010-6 (Version None)
Quarter: 2012Q1

REPORT INFORMATION
  Report Type: 
  Country: None (occurrence: None)
  Receive Date: 20120307
  Receipt Date: 20120302
  Transmission Date: 20120608
  Serious: Yes (Death)
  Sender: FDA-Public Use
  Company Number: PHFR2011GB006942

PATIENT

DRUGS (3)
  1. CARBAMAZEPINE [Suspect]
     Dosage: 800 MG, QD
     Route: 064
  2. FOLIC ACID [Concomitant]
     Route: 064
  3. SERTRALINE HYDROCHLORIDE [Concomitant]
     Route: 064

REACTIONS (3)
  - FOETAL EXPOSURE DURING PREGNANCY [None]
  - GASTROINTESTINAL DISORDER [None]
  - POST PROCEDURAL COMPLICATION [None]
